FAERS Safety Report 21403901 (Version 1)
Quarter: 2022Q4

REPORT INFORMATION
  Report Type: Spontaneous
  Country: CO (occurrence: CO)
  Receive Date: 20221003
  Receipt Date: 20221003
  Transmission Date: 20230112
  Serious: Yes (Other)
  Sender: FDA-Public Use
  Company Number: CO-PFIZER INC-202101617071

PATIENT
  Age: 64 Year
  Sex: Male

DRUGS (2)
  1. INLYTA [Suspect]
     Active Substance: AXITINIB
     Indication: Metastatic renal cell carcinoma
     Dosage: 10 MG, UNSPECIFIED FREQUENCY
     Route: 048
     Dates: start: 202005, end: 202102
  2. INLYTA [Suspect]
     Active Substance: AXITINIB
     Dosage: 5 MG, UNSPECIFIED FREQUENCY
     Route: 048
     Dates: start: 202102, end: 20211030

REACTIONS (5)
  - Acute myocardial infarction [Recovered/Resolved]
  - Cardiac failure [Unknown]
  - Toxicity to various agents [Unknown]
  - Myocardial necrosis [Unknown]
  - Hypertension [Unknown]

NARRATIVE: CASE EVENT DATE: 20200501
